FAERS Safety Report 4552229-X (Version None)
Quarter: 2004Q4

REPORT INFORMATION
  Report Type: 
  Country: None (occurrence: None)
  Receive Date: 20041217
  Receipt Date: 20040928
  Transmission Date: 20050328
  Serious: No
  Sender: FDA-Public Use
  Company Number: 2004-BP-08959BP

PATIENT
  Age: 70 Year
  Sex: Male

DRUGS (13)
  1. SPIRIVA [Suspect]
     Indication: CHRONIC OBSTRUCTIVE AIRWAYS DISEASE
     Dosage: 18 MCG (18 MCG,OD),IH
  2. FORADIL [Concomitant]
  3. ALBUTEROL [Concomitant]
  4. NORVASC [Concomitant]
  5. PREDNISONE [Concomitant]
  6. LASIX (LASIX) [Concomitant]
  7. ALDACTONE [Concomitant]
  8. BUSPIRONE HCL [Concomitant]
  9. METHYLDOPA [Concomitant]
  10. SINGULAIR [Concomitant]
  11. UNIPHYL [Concomitant]
  12. ASPIRIN [Concomitant]
  13. DUONEB [Concomitant]

REACTIONS (2)
  - PRURITUS [None]
  - RASH [None]
